FAERS Safety Report 8130552-X (Version None)
Quarter: 2012Q1

REPORT INFORMATION
  Report Type: 
  Country: None (occurrence: None)
  Receive Date: 20120210
  Receipt Date: 20120201
  Transmission Date: 20120608
  Serious: Yes (Hospitalization, Other)
  Sender: FDA-Public Use
  Company Number: US-ASTRAZENECA-2010SE46851

PATIENT
  Age: 53 Year
  Sex: Female
  Weight: 97.1 kg

DRUGS (52)
  1. SEROQUEL XR [Suspect]
     Route: 048
     Dates: start: 20080801
  2. SEROQUEL XR [Suspect]
     Route: 048
  3. NEXIUM [Suspect]
     Route: 048
     Dates: start: 20090101
  4. OXYCODONE HCL [Concomitant]
  5. PROZAC [Concomitant]
     Indication: DEPRESSION
     Route: 048
     Dates: start: 20010101
  6. LIVATALOL [Concomitant]
     Indication: BLOOD CHOLESTEROL ABNORMAL
  7. ZOFRAN [Concomitant]
     Indication: NAUSEA
  8. TRAZODONE HCL [Concomitant]
     Indication: NERVOUSNESS
     Route: 048
     Dates: start: 20110801
  9. CYMBALTA [Concomitant]
     Indication: MIGRAINE
     Route: 048
     Dates: start: 20110801
  10. ALLEGRA [Concomitant]
     Indication: SEASONAL ALLERGY
     Route: 048
     Dates: start: 20100101
  11. EXTRA STRENGTH TYLENOL [Concomitant]
     Indication: HEADACHE
     Route: 048
     Dates: start: 19760101
  12. LOSARTAN POTASSIUM [Concomitant]
     Route: 048
  13. SEROQUEL XR [Suspect]
     Indication: SLEEP DISORDER
     Route: 048
     Dates: start: 20070101
  14. NEXIUM [Suspect]
     Route: 048
  15. DOXYCYCLINE [Concomitant]
     Indication: ANTIBIOTIC THERAPY
     Dosage: 100 MG, TWO TIMES A DAY
  16. VITAMIN D [Concomitant]
  17. EPINEPHRINE [Concomitant]
     Indication: MOTION SICKNESS
     Route: 048
  18. EPINEPHRINE [Concomitant]
     Indication: DIZZINESS
     Route: 048
  19. SEROQUEL XR [Suspect]
     Route: 048
     Dates: start: 20080801
  20. NEXIUM [Suspect]
     Indication: DYSPEPSIA
     Route: 048
     Dates: start: 20090101
  21. CRESTOR [Suspect]
     Route: 048
  22. LASIX [Concomitant]
     Route: 048
     Dates: start: 20060101
  23. TRAMADOL HCL [Concomitant]
  24. PHENOBARBITAL TAB [Concomitant]
     Indication: IRRITABLE BOWEL SYNDROME
     Dosage: 16.2 MG, THREE TIMES A DAY
     Route: 048
     Dates: start: 19910101
  25. SEROQUEL XR [Suspect]
     Route: 048
  26. NEXIUM [Suspect]
     Route: 048
     Dates: start: 20100101
  27. TOPROL-XL [Suspect]
     Route: 048
  28. ASPIRIN [Concomitant]
     Indication: CARDIAC DISORDER
  29. CYMBALTA [Concomitant]
     Indication: DEPRESSION
     Route: 048
     Dates: start: 20110801
  30. LOSARTAN POTASSIUM [Concomitant]
     Indication: BLOOD PRESSURE
     Route: 048
  31. SEROQUEL XR [Suspect]
     Indication: NERVOUSNESS
     Route: 048
     Dates: start: 20070101
  32. NEXIUM [Suspect]
     Route: 048
     Dates: start: 20100101
  33. TOPROL-XL [Suspect]
     Indication: HYPERTENSION
     Route: 048
     Dates: start: 20080101
  34. CLONIDINE [Concomitant]
     Indication: BLOOD PRESSURE
     Route: 048
     Dates: start: 20100101
  35. SEROQUEL XR [Suspect]
     Route: 048
  36. NEXIUM [Suspect]
     Indication: GASTROOESOPHAGEAL REFLUX DISEASE
     Route: 048
     Dates: start: 20090101
  37. NEXIUM [Suspect]
     Route: 048
  38. LISINOPRIL [Suspect]
     Indication: BLOOD PRESSURE
     Route: 048
  39. LABETALOL HCL [Concomitant]
     Indication: BLOOD PRESSURE
     Dosage: 300 MG, THREE TIMES A DAY
  40. EMLODAPINE [Concomitant]
     Indication: BLOOD PRESSURE
     Route: 048
  41. DONNATAL [Concomitant]
     Indication: IRRITABLE BOWEL SYNDROME
     Dosage: 16.2 MG THREE TIMES A DAY
  42. NORVASC [Concomitant]
     Indication: BLOOD PRESSURE
     Route: 048
     Dates: start: 20100101
  43. SEROQUEL XR [Suspect]
     Indication: DEPRESSION
     Route: 048
     Dates: start: 20070101
  44. SEROQUEL XR [Suspect]
     Route: 048
     Dates: start: 20080801
  45. KLONOPIN [Concomitant]
     Indication: DEPRESSION
     Route: 048
     Dates: start: 19910101
  46. MIRAPEX [Concomitant]
     Indication: RESTLESS LEGS SYNDROME
     Route: 048
     Dates: start: 20090101
  47. NEXIUM [Suspect]
     Route: 048
     Dates: start: 20100101
  48. NEXIUM [Suspect]
     Route: 048
  49. LASIX [Concomitant]
     Indication: DIURETIC THERAPY
     Route: 048
  50. KLONOPIN [Concomitant]
     Indication: ANXIETY
     Route: 048
     Dates: start: 19910101
  51. METHYLDOPA [Concomitant]
     Indication: COUGH
     Dosage: 1-2 TSP Q4-6H
  52. DECADRON [Concomitant]

REACTIONS (18)
  - HYPERTENSION [None]
  - WEIGHT DECREASED [None]
  - AMNESIA [None]
  - BRONCHITIS [None]
  - NAUSEA [None]
  - PAIN IN EXTREMITY [None]
  - ARTHRALGIA [None]
  - OFF LABEL USE [None]
  - NASOPHARYNGITIS [None]
  - CHEST PAIN [None]
  - TRANSIENT ISCHAEMIC ATTACK [None]
  - INSOMNIA [None]
  - GASTROENTERITIS VIRAL [None]
  - DRUG INEFFECTIVE [None]
  - DRUG DOSE OMISSION [None]
  - CLUSTER HEADACHE [None]
  - DIARRHOEA [None]
  - BLOOD PRESSURE INCREASED [None]
